FAERS Safety Report 8260622-7 (Version None)
Quarter: 2012Q2

REPORT INFORMATION
  Report Type: 
  Country: None (occurrence: None)
  Receive Date: 20120404
  Receipt Date: 20120321
  Transmission Date: 20120825
  Serious: Yes (Death)
  Sender: FDA-Public Use
  Company Number: FR-BAXTER-2012BAX000167

PATIENT
  Age: 92 Year
  Sex: Male

DRUGS (2)
  1. CLINIMIX 5/15 SULFITE FREE IN DEXTROSE 15% [Suspect]
     Indication: OFF LABEL USE
  2. CLINIMIX 5/15 SULFITE FREE IN DEXTROSE 15% [Suspect]
     Indication: PARENTERAL NUTRITION
     Route: 058
     Dates: start: 20120314, end: 20120316

REACTIONS (3)
  - DEATH [None]
  - LOCALISED OEDEMA [None]
  - INCORRECT ROUTE OF DRUG ADMINISTRATION [None]
